FAERS Safety Report 21949937 (Version 5)
Quarter: 2023Q4

REPORT INFORMATION
  Report Type: Report from Study
  Country: CN (occurrence: CN)
  Receive Date: 20230203
  Receipt Date: 20231031
  Transmission Date: 20240109
  Serious: Yes (Death, Hospitalization)
  Sender: FDA-Public Use
  Company Number: CN-JNJFOC-20221108468

PATIENT
  Age: 70 Year
  Sex: Male
  Weight: 75 kg

DRUGS (12)
  1. TECLISTAMAB [Suspect]
     Active Substance: TECLISTAMAB
     Indication: Plasma cell myeloma
     Route: 058
     Dates: start: 20220923, end: 20220927
  2. TECLISTAMAB [Suspect]
     Active Substance: TECLISTAMAB
     Dosage: THERAPY END DATE REPORTED ALSO AS 19-OCT-2022 (DOSE ALSO REPORTED AS 1.2 ML)
     Route: 058
     Dates: start: 20220930, end: 20221214
  3. DARATUMUMAB [Suspect]
     Active Substance: DARATUMUMAB
     Indication: Plasma cell myeloma
     Route: 058
     Dates: start: 20220922, end: 20221214
  4. IBUPROFEN [Concomitant]
     Active Substance: IBUPROFEN
     Indication: Pyrexia
     Dosage: 10
     Route: 030
     Dates: start: 20221024, end: 20221025
  5. IBUPROFEN [Concomitant]
     Active Substance: IBUPROFEN
     Dates: start: 20220925, end: 20220927
  6. ALBUMIN HUMAN [Concomitant]
     Active Substance: ALBUMIN HUMAN
     Dates: start: 20220925, end: 20220929
  7. ROXITHROMYCIN [Concomitant]
     Active Substance: ROXITHROMYCIN
     Indication: Pyrexia
     Dosage: 150
     Route: 048
     Dates: start: 20221024, end: 20221024
  8. ALBUMIN HUMAN [Concomitant]
     Active Substance: ALBUMIN HUMAN
     Indication: Hypoproteinaemia
     Dosage: 50
     Route: 042
     Dates: start: 20220925, end: 20220929
  9. BICYCLOL [Concomitant]
     Active Substance: BICYCLOL
     Indication: Alanine aminotransferase increased
     Route: 048
     Dates: start: 20220929, end: 20221002
  10. BICYCLOL [Concomitant]
     Active Substance: BICYCLOL
     Indication: Aspartate aminotransferase increased
  11. BICYCLOL [Concomitant]
     Active Substance: BICYCLOL
     Indication: Gamma-glutamyltransferase increased
  12. SODIUM CHLORIDE [Concomitant]
     Active Substance: SODIUM CHLORIDE
     Indication: Hypokalaemia
     Dosage: 1
     Route: 048
     Dates: start: 20220929, end: 20221002

REACTIONS (2)
  - COVID-19 [Fatal]
  - Pneumonia [Fatal]

NARRATIVE: CASE EVENT DATE: 20221026
